FAERS Safety Report 10039600 (Version 4)
Quarter: 2014Q3

REPORT INFORMATION
  Report Type: Report from Study
  Country: US (occurrence: US)
  Receive Date: 20140326
  Receipt Date: 20140908
  Transmission Date: 20150326
  Serious: Yes (Hospitalization, Other)
  Sender: FDA-Public Use
  Company Number: US-SANOFI-AVENTIS-2013SA074519

PATIENT
  Age: 47 Year
  Sex: Female

DRUGS (1)
  1. AUBAGIO [Suspect]
     Active Substance: TERIFLUNOMIDE
     Indication: MULTIPLE SCLEROSIS
     Route: 048
     Dates: start: 20130518

REACTIONS (12)
  - Onychomadesis [Not Recovered/Not Resolved]
  - Weight decreased [Unknown]
  - Mood swings [Not Recovered/Not Resolved]
  - Unevaluable event [Unknown]
  - Diabetes mellitus [Unknown]
  - Fatigue [Unknown]
  - Peroneal nerve palsy [Unknown]
  - Restlessness [Unknown]
  - Peripheral swelling [Unknown]
  - Depression [Unknown]
  - Speech disorder [Unknown]
  - Limb discomfort [Unknown]
